FAERS Safety Report 6196775-4 (Version None)
Quarter: 2009Q2

REPORT INFORMATION
  Report Type: 
  Country: None (occurrence: None)
  Receive Date: 20090520
  Receipt Date: 20090512
  Transmission Date: 20091009
  Serious: Yes (Hospitalization)
  Sender: FDA-Public Use
  Company Number: FR-WATSON-2009-03394

PATIENT
  Age: 24 Year
  Sex: Female

DRUGS (1)
  1. TRELSTAR LA [Suspect]
     Indication: ENDOMETRIOSIS
     Dosage: 11.25 1 IN 3 M
     Route: 030
     Dates: start: 20080301

REACTIONS (9)
  - ABDOMINAL PAIN [None]
  - ABORTION SPONTANEOUS [None]
  - BREAST DISORDER [None]
  - BREAST PAIN [None]
  - DRUG EXPOSURE DURING PREGNANCY [None]
  - FATIGUE [None]
  - NAUSEA [None]
  - UNINTENDED PREGNANCY [None]
  - VOMITING [None]
